FAERS Safety Report 6765479-9 (Version None)
Quarter: 2010Q2

REPORT INFORMATION
  Report Type: 
  Country: None (occurrence: None)
  Receive Date: 20100611
  Receipt Date: 20100531
  Transmission Date: 20101027
  Serious: No
  Sender: FDA-Public Use
  Company Number: US-B.I. PHARMACEUTICALS,INC./RIDGEFIELD-2010-BP-06160BP

PATIENT
  Age: 55 Year
  Sex: Male

DRUGS (3)
  1. MICARDIS [Suspect]
     Indication: CARDIOVASCULAR EVENT PROPHYLAXIS
     Dosage: 20 MG
     Route: 048
     Dates: start: 20070101
  2. PROVENTIL [Concomitant]
     Indication: ASTHMA
     Route: 055
  3. ZOLOFT [Concomitant]
     Indication: DEPRESSION
     Route: 048

REACTIONS (1)
  - ERECTILE DYSFUNCTION [None]
